FAERS Safety Report 13857633 (Version 1)
Quarter: 2017Q3

REPORT INFORMATION
  Report Type: Spontaneous
  Country: US (occurrence: US)
  Receive Date: 20170811
  Receipt Date: 20170811
  Transmission Date: 20171127
  Serious: No
  Sender: FDA-Public Use
  Company Number: US-IROKO PHARMACEUTICALS LLC-US-I09001-17-00058

PATIENT
  Age: 71 Year
  Sex: Male

DRUGS (2)
  1. MELOXICAM AMBIGUOUS [Suspect]
     Active Substance: MELOXICAM
     Indication: LIGAMENT SPRAIN
     Route: 048
     Dates: start: 201703, end: 201703
  2. BLOOD PRESSURE MEDICATIONS [Concomitant]
     Active Substance: UNSPECIFIED INGREDIENT
     Indication: HYPERTENSION
     Route: 065

REACTIONS (2)
  - Product use in unapproved indication [Recovered/Resolved]
  - Weight increased [Recovered/Resolved]

NARRATIVE: CASE EVENT DATE: 201703
